FAERS Safety Report 6977315-6 (Version None)
Quarter: 2010Q3

REPORT INFORMATION
  Report Type: 
  Country: None (occurrence: None)
  Receive Date: 20100910
  Receipt Date: 20100901
  Transmission Date: 20110219
  Serious: Yes (Hospitalization, Other)
  Sender: FDA-Public Use
  Company Number: US-AMGEN-QUU432895

PATIENT
  Sex: Male
  Weight: 70.8 kg

DRUGS (23)
  1. ARANESP [Suspect]
     Indication: DIALYSIS
     Route: 058
     Dates: end: 20100808
  2. EPOGEN [Suspect]
     Indication: DIALYSIS
  3. PREDNISONE [Concomitant]
     Route: 048
  4. MYCOPHENOLATE MOFETIL [Concomitant]
     Route: 048
  5. LABETALOL HYDROCHLORIDE [Concomitant]
     Route: 048
  6. LOVAZA [Concomitant]
     Route: 048
  7. CEFEPIME [Concomitant]
  8. GENTAMYCIN SULFATE [Concomitant]
     Route: 061
  9. CALCIUM CARBONATE [Concomitant]
     Route: 048
  10. MULTIPLE VITAMINS [Concomitant]
     Route: 048
  11. COPPER [Concomitant]
     Dates: start: 20100112
  12. VITAMIN E [Concomitant]
     Route: 048
  13. ZINC [Concomitant]
     Route: 048
  14. BIOTIN [Concomitant]
     Route: 048
  15. CYANOCOBALAMIN [Concomitant]
     Route: 048
  16. VITAMIN A [Concomitant]
  17. MEPHYTON [Concomitant]
     Route: 048
  18. COENZYME Q10 [Concomitant]
     Route: 048
  19. L-LYSINE [Concomitant]
     Route: 048
  20. BACITRACIN [Concomitant]
  21. CAFFEINE [Concomitant]
     Route: 048
  22. ASPIRIN [Concomitant]
  23. UNSPECIFIED MEDICATION [Concomitant]

REACTIONS (2)
  - ANAEMIA [None]
  - APLASIA PURE RED CELL [None]
